FAERS Safety Report 24803735 (Version 4)
Quarter: 2025Q3

REPORT INFORMATION
  Report Type: Report from Study
  Country: CN (occurrence: CN)
  Receive Date: 20250103
  Receipt Date: 20250820
  Transmission Date: 20251020
  Serious: Yes (Hospitalization)
  Sender: RANBAXY
  Company Number: CN-SUN PHARMACEUTICAL INDUSTRIES LTD-2024R1-487541

PATIENT
  Age: 80 Year
  Sex: Female
  Weight: 55 kg

DRUGS (12)
  1. SONIDEGIB [Suspect]
     Active Substance: SONIDEGIB
     Indication: Basal cell carcinoma
     Dosage: 200 MILLIGRAM, QD
     Route: 048
     Dates: start: 20240606, end: 20241027
  2. SONIDEGIB [Suspect]
     Active Substance: SONIDEGIB
     Dosage: 200 MILLIGRAM, QD
     Route: 048
     Dates: start: 20240702
  3. SONIDEGIB [Suspect]
     Active Substance: SONIDEGIB
     Dosage: 200 UNK
     Route: 048
     Dates: start: 20241028, end: 20241122
  4. ENALAPRIL MALEATE [Concomitant]
     Active Substance: ENALAPRIL MALEATE
     Indication: Hypertension
     Dosage: 10 MILLIGRAM, QD
     Route: 048
     Dates: start: 20240530
  5. LEVAMLODIPINE BESYLATE [Concomitant]
     Active Substance: LEVAMLODIPINE BESYLATE
     Indication: Hypertension
     Dosage: 5 MILLIGRAM, QD
     Route: 048
     Dates: start: 20240530
  6. LEVOFLOXACIN [Concomitant]
     Active Substance: LEVOFLOXACIN
     Indication: Urethritis
     Dosage: 0.1 GRAM, BID
     Route: 048
     Dates: start: 20240529, end: 20240604
  7. METOPROLOL [Concomitant]
     Active Substance: METOPROLOL
     Indication: Hypertension
     Dosage: 25 MILLIGRAM, BID
     Route: 048
     Dates: start: 202302, end: 20240529
  8. SONIDEGIB PHOSPHATE [Concomitant]
     Active Substance: SONIDEGIB PHOSPHATE
     Indication: Urinary tract infection
     Route: 048
     Dates: start: 20240618, end: 20240629
  9. SONIDEGIB PHOSPHATE [Concomitant]
     Active Substance: SONIDEGIB PHOSPHATE
     Indication: Urinary tract infection
     Route: 048
     Dates: start: 20240618, end: 20240629
  10. SONIDEGIB PHOSPHATE [Concomitant]
     Active Substance: SONIDEGIB PHOSPHATE
     Indication: Urinary tract infection
     Route: 048
     Dates: start: 20240625, end: 20240626
  11. Nao xin qing [Concomitant]
     Indication: Vertigo
     Dosage: 2 TABLETS/TIME, TID
     Route: 048
     Dates: start: 202302
  12. San jin pian [Concomitant]
     Indication: Urethritis
     Dosage: 3 DOSAGE FORM, TID
     Route: 048
     Dates: start: 20240529, end: 20240604

REACTIONS (1)
  - Functional gastrointestinal disorder [Recovered/Resolved]

NARRATIVE: CASE EVENT DATE: 20241206
